FAERS Safety Report 22131787 (Version 1)
Quarter: 2023Q1

REPORT INFORMATION
  Report Type: Spontaneous
  Country: US (occurrence: None)
  Receive Date: 20230322
  Receipt Date: 20230322
  Transmission Date: 20230418
  Serious: Yes (Hospitalization)
  Sender: FDA-Public Use
  Company Number: None

PATIENT
  Age: 81 Year
  Sex: Female
  Weight: 78.93 kg

DRUGS (30)
  1. EVEROLIMUS [Suspect]
     Active Substance: EVEROLIMUS
     Indication: Breast cancer female
     Dosage: FREQUENCY : DAILY;?
     Route: 048
  2. CAPECITABINE [Suspect]
     Active Substance: CAPECITABINE
     Indication: Breast cancer female
     Dosage: FREQUENCY : TWICE A DAY;?
     Route: 048
  3. CAPECITABINE [Suspect]
     Active Substance: CAPECITABINE
     Indication: Breast cancer female
  4. ACETAMINOPHEN [Concomitant]
     Active Substance: ACETAMINOPHEN
  5. TYLENOL WITH CODEINE [Concomitant]
     Active Substance: ACETAMINOPHEN\CODEINE PHOSPHATE
  6. ALLOPURINOL [Concomitant]
     Active Substance: ALLOPURINOL
  7. CALCIUM [Concomitant]
     Active Substance: CALCIUM
  8. COENZYME Q10 [Concomitant]
     Active Substance: DIETARY SUPPLEMENT\UBIDECARENONE
  9. ELIQUIS [Concomitant]
     Active Substance: APIXABAN
  10. FEMARA [Concomitant]
     Active Substance: LETROZOLE
  11. FERROUS SULFATE [Concomitant]
     Active Substance: FERROUS SULFATE
  12. FLUCONAZOLE [Concomitant]
     Active Substance: FLUCONAZOLE
  13. FUROSEMIDE [Concomitant]
     Active Substance: FUROSEMIDE
  14. GABAPENTIN [Concomitant]
     Active Substance: GABAPENTIN
  15. HUMULIN 70/30 [Concomitant]
     Active Substance: INSULIN HUMAN
  16. IBRANCE [Concomitant]
     Active Substance: PALBOCICLIB
  17. LIDOCAINE\PRILOCAINE [Concomitant]
     Active Substance: LIDOCAINE\PRILOCAINE
  18. LIPITOR [Concomitant]
     Active Substance: ATORVASTATIN CALCIUM
  19. METFORMIN [Concomitant]
     Active Substance: METFORMIN HYDROCHLORIDE
  20. METOPROLOL [Concomitant]
     Active Substance: METOPROLOL
  21. NITROSTAT [Concomitant]
     Active Substance: NITROGLYCERIN
  22. OMEGA 3 [Concomitant]
     Active Substance: CAPSAICIN
  23. POTASSIUM [Concomitant]
     Active Substance: POTASSIUM
  24. SYNTHROID [Concomitant]
     Active Substance: LEVOTHYROXINE SODIUM
  25. TAMOXIFEN [Concomitant]
     Active Substance: TAMOXIFEN
  26. TRAMADOL [Concomitant]
     Active Substance: TRAMADOL
  27. VITAMIN B12 [Concomitant]
     Active Substance: CYANOCOBALAMIN
  28. VITAMIN D [Concomitant]
     Active Substance: VITAMIN D NOS
  29. VOLTAREN [Concomitant]
     Active Substance: DICLOFENAC SODIUM
  30. ZINC [Concomitant]
     Active Substance: ZINC

REACTIONS (1)
  - Hospice care [None]
